FAERS Safety Report 10666438 (Version 1)
Quarter: 2014Q4

REPORT INFORMATION
  Report Type: Spontaneous
  Country: US (occurrence: US)
  Receive Date: 20141221
  Receipt Date: 20141221
  Transmission Date: 20150529
  Serious: No
  Sender: FDA-Public Use
  Company Number: US-009507513-1411USA013371

PATIENT
  Sex: Female

DRUGS (3)
  1. VICTRELIS [Suspect]
     Active Substance: BOCEPREVIR
     Indication: HEPATITIS C
     Dosage: DAILY DOSE: 3 IN 1 D
     Route: 065
     Dates: start: 20120218
  2. PEGASYS [Suspect]
     Active Substance: PEGINTERFERON ALFA-2A
     Indication: HEPATITIS C
     Dosage: DAILY DOSE: 180 MICROGRAM, 1 IN 1 WK
     Route: 065
     Dates: start: 20120121
  3. REBETOL [Suspect]
     Active Substance: RIBAVIRIN
     Indication: HEPATITIS C
     Dosage: DAILY DOSE: 1000 MG, 1 IN 1 D
     Route: 065
     Dates: start: 20120121

REACTIONS (1)
  - Injection site haemorrhage [Unknown]
